FAERS Safety Report 7724191-X (Version None)
Quarter: 2011Q3

REPORT INFORMATION
  Report Type: 
  Country: None (occurrence: None)
  Receive Date: 20110901
  Receipt Date: 20110824
  Transmission Date: 20111222
  Serious: Yes (Hospitalization)
  Sender: FDA-Public Use
  Company Number: US-ROCHE-799126

PATIENT
  Age: 70 Year
  Sex: Female

DRUGS (1)
  1. AVASTIN [Suspect]
     Indication: OVARIAN CANCER
     Route: 065

REACTIONS (4)
  - PROTEINURIA [None]
  - THROMBOTIC THROMBOCYTOPENIC PURPURA [None]
  - MICROANGIOPATHIC HAEMOLYTIC ANAEMIA [None]
  - BLOOD CREATININE INCREASED [None]
